FAERS Safety Report 9797178 (Version 2)
Quarter: 2014Q1

REPORT INFORMATION
  Report Type: Spontaneous
  Country: CA (occurrence: CA)
  Receive Date: 20140106
  Receipt Date: 20140114
  Transmission Date: 20141002
  Serious: Yes (Other)
  Sender: FDA-Public Use
  Company Number: PHHY2013CA153791

PATIENT
  Sex: Female

DRUGS (30)
  1. VALSARTAN [Suspect]
     Indication: HYPERTENSION
     Dosage: 320 MG, DAILY
  2. AMLODIPINE [Suspect]
     Indication: HYPERTENSION
     Dosage: 10 MG, DAILY
  3. METFORMIN [Suspect]
     Indication: DIABETES MELLITUS
     Dosage: 500 MG, BID
  4. FUROSEMIDE [Suspect]
     Indication: OEDEMA PERIPHERAL
     Dosage: 40 MG, DAILY
  5. ACEBUTOLOL [Suspect]
     Indication: HYPERTENSION
  6. ACETYLSALICYLIC ACID [Suspect]
     Dosage: 81 MG, DAILY
  7. RISEDRONATE SODIUM [Suspect]
     Indication: OSTEOPOROSIS
     Dosage: 35 MG, ONCE IN A WEEK (WEDNESDAY)
  8. PRAMIPEXOLE [Suspect]
     Indication: RESTLESS LEGS SYNDROME
     Dosage: 0.25 MG, AT BED TIME
  9. TRAMADOL [Suspect]
     Indication: PAIN
  10. ALLOPURINOL [Suspect]
     Indication: GOUT
     Dosage: 250 MG, DAILY
  11. CALCIPOTRIENE [Suspect]
     Indication: PSORIASIS
  12. BETAMETHASONE [Suspect]
     Indication: PSORIASIS
  13. ALISKIREN [Suspect]
     Dosage: 300 MG, DAILY
  14. LABETALOL [Suspect]
     Dosage: 200 MG, BID
  15. HYDRALAZINE [Suspect]
  16. SIMVASTATIN [Suspect]
     Dosage: 10 MG, DAILY
  17. GLICLAZIDE [Suspect]
     Dosage: 30 MG, BID
  18. GLICLAZIDE [Suspect]
     Dosage: 60 MG, DAILY
  19. FLUTICASONE [Suspect]
     Dosage: 2 DF, BID
  20. SALBUTAMOL [Suspect]
  21. CALCIUM [Suspect]
  22. LEVOTHYROXINE [Suspect]
     Dosage: 0.088 MG, EACH MORNING
  23. METHOCARBAMOL [Suspect]
     Dosage: 400 MG, BID (2 EACH MORNING)
  24. VITAMIN B12 [Suspect]
  25. PANTOPRAZOLE [Suspect]
     Dosage: 40 MG, DAILY
  26. RANITIDINE [Suspect]
     Dosage: 150 MG, WHEN NEEDED
  27. VITAMIN D [Concomitant]
     Indication: OSTEOPOROSIS
     Dosage: 1000 U, UNK
  28. SITAGLIPTIN [Concomitant]
     Indication: DIABETES MELLITUS
     Dosage: 100 MG, DAILY
  29. ACETAMINOPHEN [Concomitant]
     Indication: PAIN
     Dosage: 325 MG, BID (2 EACH MORNING)
  30. PSYLLIUM [Concomitant]
     Indication: CONSTIPATION

REACTIONS (3)
  - Hypertension [Recovering/Resolving]
  - Diabetes mellitus inadequate control [Recovering/Resolving]
  - Drug ineffective [Unknown]
